FAERS Safety Report 4346869-0 (Version None)
Quarter: 2004Q1

REPORT INFORMATION
  Report Type: 
  Country: None (occurrence: None)
  Receive Date: 20040329
  Receipt Date: 20031210
  Transmission Date: 20041129
  Serious: No
  Sender: FDA-Public Use
  Company Number: USA031254295

PATIENT
  Age: 8 Year
  Sex: Male

DRUGS (1)
  1. STRATTERA [Suspect]
     Indication: ATTENTION DEFICIT/HYPERACTIVITY DISORDER
     Dosage: 40 MG/ IN THE EVENING
     Dates: start: 20031001

REACTIONS (6)
  - ABDOMINAL PAIN UPPER [None]
  - ANGER [None]
  - DRUG INEFFECTIVE [None]
  - HEADACHE [None]
  - IRRITABILITY [None]
  - NERVOUSNESS [None]
